FAERS Safety Report 8070112-2 (Version None)
Quarter: 2012Q1

REPORT INFORMATION
  Report Type: 
  Country: None (occurrence: None)
  Receive Date: 20120119
  Receipt Date: 20120112
  Transmission Date: 20120608
  Serious: Yes (Hospitalization)
  Sender: FDA-Public Use
  Company Number: 2009-200919-NL

PATIENT
  Age: 32 Year
  Sex: Female
  Weight: 99 kg

DRUGS (2)
  1. NUVARING [Suspect]
     Indication: HORMONE LEVEL ABNORMAL
     Dates: start: 20070401, end: 20070501
  2. LEXAPRO [Concomitant]

REACTIONS (8)
  - MIGRAINE [None]
  - HYPERTENSION [None]
  - PULMONARY EMBOLISM [None]
  - TREMOR [None]
  - DYSPEPSIA [None]
  - ANXIETY [None]
  - HELICOBACTER TEST POSITIVE [None]
  - PNEUMONIA [None]
